FAERS Safety Report 8877541 (Version 1)
Quarter: 2012Q4

REPORT INFORMATION
  Report Type: 
  Country: US (occurrence: US)
  Receive Date: 20121024
  Receipt Date: 20121024
  Transmission Date: 20130627
  Serious: Yes (Death)
  Sender: FDA-Public Use
  Company Number: US-PFIZER INC-2012263832

PATIENT
  Age: 57 Year
  Sex: Female

DRUGS (7)
  1. INLYTA [Suspect]
     Indication: RENAL CANCER
     Dosage: 5 mg, 2x/day
     Route: 048
     Dates: start: 20120504, end: 20120703
  2. ONDANSETRON [Concomitant]
     Dosage: UNK
  3. GAS-X [Concomitant]
     Dosage: UNK
  4. PEPTO-BISMOL [Concomitant]
     Dosage: UNK
  5. TUMS [Concomitant]
     Dosage: UNK
  6. PROMETHAZINE [Concomitant]
     Dosage: UNK
  7. HYDROCODONE W/ACETAMINOPHEN [Concomitant]
     Dosage: UNK

REACTIONS (1)
  - Death [Fatal]
